FAERS Safety Report 8990835 (Version 1)
Quarter: 2012Q4

REPORT INFORMATION
  Report Type: Spontaneous
  Country: US (occurrence: None)
  Receive Date: 20121226
  Receipt Date: 20121226
  Transmission Date: 20130627
  Serious: Yes (Death)
  Sender: FDA-Public Use
  Company Number: None

PATIENT
  Age: 84 Year
  Sex: Female
  Weight: 100.8 kg

DRUGS (1)
  1. SIMVASTATIN [Suspect]
     Dosage: 40 mg once a day po
     Route: 048

REACTIONS (5)
  - Dyspnoea [None]
  - Muscular weakness [None]
  - Respiratory failure [None]
  - Cardiac failure congestive [None]
  - Movement disorder [None]
